FAERS Safety Report 4892156-1 (Version None)
Quarter: 2006Q1

REPORT INFORMATION
  Report Type: 
  Country: None (occurrence: None)
  Receive Date: 20060124
  Receipt Date: 20060116
  Transmission Date: 20060701
  Serious: Yes (Death)
  Sender: FDA-Public Use
  Company Number: 2006-US-00396

PATIENT
  Age: 46 Year
  Sex: Female

DRUGS (1)
  1. CLOZAPINE [Suspect]
     Indication: SCHIZOAFFECTIVE DISORDER
     Dosage: 175 MG , QD, ORAL
     Route: 048
     Dates: start: 20000901, end: 20051201

REACTIONS (1)
  - PULMONARY HYPERTENSION [None]
